FAERS Safety Report 11782352 (Version 1)
Quarter: 2015Q4

REPORT INFORMATION
  Report Type: Spontaneous
  Country: US (occurrence: US)
  Receive Date: 20151127
  Receipt Date: 20151127
  Transmission Date: 20160305
  Serious: No
  Sender: FDA-Public Use
  Company Number: US-LUPIN PHARMACEUTICALS INC.-2015-03041

PATIENT
  Sex: Female
  Weight: 68.1 kg

DRUGS (1)
  1. FENOFIBRIC ACID DELAYED-RELEASE CAPSULES 135MG [Suspect]
     Active Substance: FENOFIBRIC ACID
     Indication: BLOOD TRIGLYCERIDES INCREASED
     Route: 048
     Dates: start: 20150624

REACTIONS (1)
  - Rash papular [Not Recovered/Not Resolved]
